FAERS Safety Report 17115373 (Version 1)
Quarter: 2019Q4

REPORT INFORMATION
  Report Type: Report from Study
  Country: FR (occurrence: FR)
  Receive Date: 20191205
  Receipt Date: 20191205
  Transmission Date: 20200122
  Serious: Yes (Death)
  Sender: FDA-Public Use
  Company Number: FR-MYLANLABS-2019M1119040

PATIENT
  Sex: Female

DRUGS (3)
  1. PACLITAXEL. [Suspect]
     Active Substance: PACLITAXEL
     Indication: BREAST CANCER METASTATIC
     Dosage: ON DAY 1, 8, 15, 22 AND 29; 35-DAYS CYCLE
     Route: 042
  2. FOLINIC ACID [Suspect]
     Active Substance: LEUCOVORIN
     Indication: BREAST CANCER METASTATIC
     Dosage: 35-DAYS CYCLE
     Route: 048
  3. TEGAFUR W/URACIL [Suspect]
     Active Substance: TEGAFUR\URACIL
     Indication: BREAST CANCER METASTATIC
     Dosage: THREE TIMES A DAY; 35-DAYS CYCLE
     Route: 048

REACTIONS (3)
  - Septic shock [Fatal]
  - Febrile neutropenia [Fatal]
  - Respiratory failure [Fatal]
